FAERS Safety Report 5226693-7 (Version None)
Quarter: 2007Q1

REPORT INFORMATION
  Report Type: 
  Country: None (occurrence: None)
  Receive Date: 20070129
  Receipt Date: 20061130
  Transmission Date: 20070707
  Serious: Yes (Death)
  Sender: FDA-Public Use
  Company Number: T200601640

PATIENT
  Age: 45 Year
  Sex: 0

DRUGS (3)
  1. METHADOSE [Suspect]
  2. OXYCODONE HCL [Suspect]
  3. ALPRAZOLAM [Suspect]

REACTIONS (1)
  - COMPLETED SUICIDE [None]
